FAERS Safety Report 9773681 (Version 2)
Quarter: 2013Q4

REPORT INFORMATION
  Report Type: Spontaneous
  Country: US (occurrence: US)
  Receive Date: 20131219
  Receipt Date: 20131219
  Transmission Date: 20140711
  Serious: No
  Sender: FDA-Public Use
  Company Number: US-MYLANLABS-2013S1025610

PATIENT
  Age: 68 Year
  Sex: Male
  Weight: 64.86 kg

DRUGS (4)
  1. ATORVASTATIN CALCIUM TABLETS [Suspect]
     Indication: BLOOD CHOLESTEROL INCREASED
     Route: 048
     Dates: start: 2012, end: 20131028
  2. BYSTOLIC [Concomitant]
     Route: 048
  3. ASA [Concomitant]
     Route: 048
  4. LOSARTAN [Concomitant]
     Route: 048

REACTIONS (4)
  - Therapeutic response unexpected with drug substitution [Not Recovered/Not Resolved]
  - Low density lipoprotein increased [Recovered/Resolved]
  - High density lipoprotein decreased [Recovered/Resolved]
  - Blood cholesterol increased [Not Recovered/Not Resolved]
